FAERS Safety Report 4873593-8 (Version None)
Quarter: 2005Q4

REPORT INFORMATION
  Report Type: 
  Country: None (occurrence: None)
  Receive Date: 20051201
  Receipt Date: 20050823
  Transmission Date: 20060501
  Serious: No
  Sender: FDA-Public Use
  Company Number: 2005PV001473

PATIENT
  Age: 66 Year
  Sex: Female

DRUGS (12)
  1. BYETTA [Suspect]
     Indication: DIABETES MELLITUS NON-INSULIN-DEPENDENT
     Dosage: 5 MCG;BID;SC
     Route: 058
     Dates: start: 20050818
  2. HUMALOG MIX 75/25 [Concomitant]
  3. FOSAMAX [Concomitant]
  4. MULTIVITAMIN [Concomitant]
  5. ICAPS [Concomitant]
  6. VASOTEC [Concomitant]
  7. LIPITOR [Concomitant]
  8. POTASSIUM [Concomitant]
  9. LASIX [Concomitant]
  10. LOPID [Concomitant]
  11. FERROUS SULFATE TAB [Concomitant]
  12. METFORMIN [Concomitant]

REACTIONS (2)
  - NAUSEA [None]
  - WEIGHT DECREASED [None]
